FAERS Safety Report 8315303-8 (Version None)
Quarter: 2012Q2

REPORT INFORMATION
  Report Type: 
  Country: None (occurrence: None)
  Receive Date: 20120426
  Receipt Date: 20120419
  Transmission Date: 20120825
  Serious: Yes (Death, Hospitalization)
  Sender: FDA-Public Use
  Company Number: US-CELGENEUS-163-21880-12032581

PATIENT
  Sex: Male
  Weight: 124.4 kg

DRUGS (7)
  1. SYNTHROID [Concomitant]
     Route: 065
  2. MAGNESIUM [Concomitant]
     Route: 065
  3. REVLIMID [Suspect]
     Indication: MULTIPLE MYELOMA
     Dosage: 5 MILLIGRAM
     Route: 048
     Dates: start: 20110607
  4. COUMADIN [Concomitant]
     Route: 065
  5. ABILIFY [Concomitant]
     Route: 065
  6. MELATONIN [Concomitant]
     Route: 065
  7. CIPROFLOXACIN HCL [Concomitant]
     Route: 065

REACTIONS (2)
  - UROSEPSIS [None]
  - RENAL FAILURE [None]
